FAERS Safety Report 13181392 (Version 3)
Quarter: 2017Q1

REPORT INFORMATION
  Report Type: Report from Study
  Country: CO (occurrence: CO)
  Receive Date: 20170202
  Receipt Date: 20170324
  Transmission Date: 20170428
  Serious: Yes (Other)
  Sender: FDA-Public Use
  Company Number: CO-SA-2017SA014042

PATIENT
  Age: 60 Year
  Sex: Female

DRUGS (1)
  1. LEMTRADA [Suspect]
     Active Substance: ALEMTUZUMAB
     Indication: MULTIPLE SCLEROSIS
     Route: 041
     Dates: start: 20160116, end: 20160120

REACTIONS (8)
  - Neutrophilia [Not Recovered/Not Resolved]
  - Neutrophil percentage increased [Recovered/Resolved]
  - Monocyte percentage increased [Recovered/Resolved]
  - Lymphocyte percentage decreased [Recovered/Resolved]
  - Lymphopenia [Not Recovered/Not Resolved]
  - Mean platelet volume increased [Recovered/Resolved]
  - Leukopenia [Recovered/Resolved]
  - Eosinophilia [Not Recovered/Not Resolved]

NARRATIVE: CASE EVENT DATE: 20170118
